FAERS Safety Report 10050465 (Version 4)
Quarter: 2014Q2

REPORT INFORMATION
  Report Type: Report from Study
  Country: US (occurrence: US)
  Receive Date: 20140401
  Receipt Date: 20140505
  Transmission Date: 20141212
  Serious: Yes (Death, Other)
  Sender: FDA-Public Use
  Company Number: US-SA-2013SA132849

PATIENT
  Age: 54 Year
  Sex: Female

DRUGS (5)
  1. AUBAGIO [Suspect]
     Indication: MULTIPLE SCLEROSIS
     Route: 048
     Dates: start: 20130305
  2. BACLOFEN [Concomitant]
  3. DETROL [Concomitant]
  4. NORVASC [Concomitant]
  5. ZOLOFT [Concomitant]

REACTIONS (4)
  - Death [Fatal]
  - Depression [Unknown]
  - Pruritus [Unknown]
  - Weight decreased [Unknown]
